FAERS Safety Report 9148586 (Version 1)
Quarter: 2013Q1

REPORT INFORMATION
  Report Type: Report from Study
  Country: CA (occurrence: CA)
  Receive Date: 20130308
  Receipt Date: 20130308
  Transmission Date: 20140127
  Serious: Yes (Hospitalization)
  Sender: FDA-Public Use
  Company Number: CA-JNJFOC-20130300595

PATIENT
  Age: 32 Year
  Sex: Female

DRUGS (2)
  1. SIMPONI [Suspect]
     Indication: PRODUCT USED FOR UNKNOWN INDICATION
     Route: 058
     Dates: end: 20121004
  2. VOLTAREN [Concomitant]
     Indication: ANTIINFLAMMATORY THERAPY

REACTIONS (3)
  - Decreased appetite [Unknown]
  - Eating disorder [Unknown]
  - Abdominal pain [Unknown]
